FAERS Safety Report 5097847-8 (Version None)
Quarter: 2006Q3

REPORT INFORMATION
  Report Type: 
  Country: None (occurrence: None)
  Receive Date: 20060905
  Receipt Date: 20060821
  Transmission Date: 20061208
  Serious: Yes (Other)
  Sender: FDA-Public Use
  Company Number: 2006-186

PATIENT
  Age: 82 Year
  Sex: Male

DRUGS (1)
  1. CITALOPRAM HYDROBROMIDE [Suspect]
     Dosage: 10MG;

REACTIONS (4)
  - DYSKINESIA [None]
  - HALLUCINATION [None]
  - SWELLING [None]
  - TREMOR [None]
